FAERS Safety Report 25180909 (Version 3)
Quarter: 2025Q2

REPORT INFORMATION
  Report Type: Report from Study
  Country: US (occurrence: US)
  Receive Date: 20250409
  Receipt Date: 20250429
  Transmission Date: 20250716
  Serious: Yes (Hospitalization, Other)
  Sender: ABBVIE
  Company Number: US-ABBVIE-6210603

PATIENT
  Age: 32 Year
  Sex: Female
  Weight: 97.52 kg

DRUGS (1)
  1. CREON [Suspect]
     Active Substance: PANCRELIPASE AMYLASE\PANCRELIPASE LIPASE\PANCRELIPASE PROTEASE
     Indication: Pancreatitis acute
     Route: 048
     Dates: start: 20180301

REACTIONS (14)
  - Stent placement [Unknown]
  - UV light therapy [Unknown]
  - Unevaluable event [Unknown]
  - Pancreatitis chronic [Unknown]
  - Pancreatic mass [Unknown]
  - Gastrointestinal tube insertion [Recovered/Resolved]
  - Gastrointestinal tube insertion [Recovered/Resolved]
  - Abdominal pain upper [Not Recovered/Not Resolved]
  - Acquired oesophageal web [Not Recovered/Not Resolved]
  - Gastric ulcer [Not Recovered/Not Resolved]
  - Pancreatic disorder [Unknown]
  - Gastrooesophageal reflux disease [Not Recovered/Not Resolved]
  - Lipase decreased [Unknown]
  - Gastrointestinal disorder [Not Recovered/Not Resolved]

NARRATIVE: CASE EVENT DATE: 20180101
